FAERS Safety Report 18427868 (Version 1)
Quarter: 2020Q4

REPORT INFORMATION
  Report Type: Spontaneous
  Country: GB (occurrence: GB)
  Receive Date: 20201026
  Receipt Date: 20201026
  Transmission Date: 20210114
  Serious: Yes (Hospitalization)
  Sender: FDA-Public Use
  Company Number: GB-ASTRAZENECA-2020SF37882

PATIENT
  Age: 62 Year
  Sex: Male
  Weight: 76 kg

DRUGS (12)
  1. GLYCERYL TRINITRATE [Concomitant]
     Active Substance: NITROGLYCERIN
  2. BISOPROLOL [Concomitant]
     Active Substance: BISOPROLOL
  3. CYANOCOBALAMIN. [Concomitant]
     Active Substance: CYANOCOBALAMIN
  4. HYPROMELLOSE [Concomitant]
     Active Substance: HYPROMELLOSES
  5. GLICLAZIDE [Concomitant]
     Active Substance: GLICLAZIDE
  6. PREGABALIN. [Concomitant]
     Active Substance: PREGABALIN
  7. SAXAGLIPTIN [Suspect]
     Active Substance: SAXAGLIPTIN
     Indication: DIABETES MELLITUS
     Dosage: 5MG/10MG
     Route: 048
     Dates: start: 20170901, end: 20201001
  8. METFORMIN HYDROCHLORIDE. [Concomitant]
     Active Substance: METFORMIN HYDROCHLORIDE
  9. DAPAGLIFLOZIN. [Suspect]
     Active Substance: DAPAGLIFLOZIN
     Indication: DIABETES MELLITUS
     Dosage: 5MG/10MG
     Route: 048
     Dates: start: 20170901, end: 20201001
  10. ATORVASTATIN [Concomitant]
     Active Substance: ATORVASTATIN
  11. RAMIPRIL. [Concomitant]
     Active Substance: RAMIPRIL
  12. ACETYLSALICYLIC ACID [Concomitant]
     Active Substance: ASPIRIN

REACTIONS (4)
  - Diabetic ketoacidosis [Recovered/Resolved]
  - Metabolic acidosis [Unknown]
  - Coronavirus infection [Unknown]
  - Sepsis [Unknown]

NARRATIVE: CASE EVENT DATE: 20200929
